FAERS Safety Report 18363788 (Version 1)
Quarter: 2020Q4

REPORT INFORMATION
  Report Type: Report from Study
  Country: US (occurrence: US)
  Receive Date: 20201009
  Receipt Date: 20201009
  Transmission Date: 20210114
  Serious: No
  Sender: FDA-Public Use
  Company Number: US-TERSERA THERAPEUTICS LLC-US2019TSO238345

PATIENT

DRUGS (2)
  1. XPOVIO [Suspect]
     Active Substance: SELINEXOR
     Dosage: 20 MG, Z(60 MG ONCE WEEKLY)
  2. ROLAPITANT HYDROCHLORIDE [Suspect]
     Active Substance: ROLAPITANT
     Dosage: 180 MG, Z(EVERY 2 WEEK)
     Dates: start: 20190916

REACTIONS (3)
  - Chest pain [Unknown]
  - Loose tooth [Unknown]
  - Gingival recession [Unknown]
